FAERS Safety Report 6522591-7 (Version None)
Quarter: 2009Q4

REPORT INFORMATION
  Report Type: 
  Country: None (occurrence: None)
  Receive Date: 20091224
  Receipt Date: 20091222
  Transmission Date: 20100525
  Serious: Yes (Other)
  Sender: FDA-Public Use
  Company Number: 2009029824

PATIENT
  Sex: Male

DRUGS (2)
  1. TREANDA [Suspect]
     Indication: LYMPHOMA
     Dosage: 100 MG, INTRAVENOUS
     Route: 042
  2. RITUXAN [Concomitant]

REACTIONS (4)
  - PRURITUS [None]
  - RASH [None]
  - SKIN EXFOLIATION [None]
  - TOXIC EPIDERMAL NECROLYSIS [None]
